FAERS Safety Report 5742587-2 (Version None)
Quarter: 2008Q2

REPORT INFORMATION
  Report Type: 
  Country: None (occurrence: None)
  Receive Date: 20080519
  Receipt Date: 20080515
  Transmission Date: 20081010
  Serious: Yes (Hospitalization)
  Sender: FDA-Public Use
  Company Number: CO-BAYER-200814047LA

PATIENT
  Age: 41 Year
  Sex: Female
  Weight: 40 kg

DRUGS (2)
  1. BETAFERON [Suspect]
     Indication: MULTIPLE SCLEROSIS
     Route: 058
     Dates: start: 19940101, end: 20080401
  2. BETAFERON [Suspect]
     Route: 058

REACTIONS (2)
  - ANAEMIA [None]
  - INFECTION [None]
